FAERS Safety Report 9333048 (Version 1)
Quarter: 2013Q2

REPORT INFORMATION
  Report Type: Spontaneous
  Country: US (occurrence: US)
  Receive Date: 20130606
  Receipt Date: 20130606
  Transmission Date: 20140414
  Serious: No
  Sender: FDA-Public Use
  Company Number: US-VERTEX PHARMACEUTICALS INC-2013-006752

PATIENT
  Sex: Female

DRUGS (4)
  1. INCIVEK [Suspect]
     Indication: HEPATITIS C
     Dosage: UNK
     Route: 048
  2. RIBAVIRIN [Suspect]
     Indication: HEPATITIS C
     Dosage: UNK
     Route: 048
  3. RIBAVIRIN [Suspect]
     Dosage: DOSE REDUCED
  4. PEGINTERFERON [Suspect]
     Indication: HEPATITIS C
     Route: 058

REACTIONS (2)
  - Anaemia [Recovered/Resolved]
  - Pruritus [Unknown]
